FAERS Safety Report 9214854 (Version 3)
Quarter: 2013Q3

REPORT INFORMATION
  Report Type: Spontaneous
  Country: US (occurrence: US)
  Receive Date: 20130405
  Receipt Date: 20130717
  Transmission Date: 20140515
  Serious: Yes (Hospitalization, Other)
  Sender: FDA-Public Use
  Company Number: US-ASTRAZENECA-2013SE20460

PATIENT
  Age: 84 Year
  Sex: Male
  Weight: 77.1 kg

DRUGS (15)
  1. MULTIVITAMIN [Concomitant]
     Dosage: DAILY
     Route: 048
  2. CARVEDILOL [Concomitant]
  3. PRADAXA [Concomitant]
     Indication: ANTICOAGULANT THERAPY
  4. PRADAXA [Concomitant]
     Indication: ANTICOAGULANT THERAPY
  5. IBUPROFEN [Concomitant]
  6. SYMBICORT [Suspect]
     Indication: DYSPNOEA
     Dosage: 80/4.5 MCG, 2 PUFFS BID
     Route: 055
  7. SYMBICORT [Suspect]
     Indication: ASTHMA
     Dosage: 80/4.5 MCG, 2 PUFFS BID
     Route: 055
  8. OMEPRAZOLE [Suspect]
     Indication: GASTROOESOPHAGEAL REFLUX DISEASE
     Route: 048
  9. ALTACE [Suspect]
     Indication: HYPERTENSION
     Route: 048
     Dates: start: 2003
  10. ALTACE [Suspect]
     Indication: HYPERTENSION
     Route: 048
  11. NASONEX [Concomitant]
     Indication: DYSPNOEA
     Dosage: PRN
     Route: 045
  12. NASONEX [Concomitant]
     Indication: DYSPNOEA
     Dosage: 2 SPRAYS DAILY
     Route: 045
  13. LIPITOR [Concomitant]
     Indication: BLOOD CHOLESTEROL ABNORMAL
     Route: 048
     Dates: start: 1998
  14. FISH OIL [Concomitant]
     Route: 048
     Dates: start: 1993
  15. FISH OIL [Concomitant]
     Route: 048

REACTIONS (11)
  - Cerebrovascular accident [Unknown]
  - Transient ischaemic attack [Unknown]
  - Visual impairment [Unknown]
  - Cognitive disorder [Unknown]
  - Dyscalculia [Unknown]
  - Glucose tolerance impaired [Unknown]
  - Confusional state [Unknown]
  - Blood pressure increased [Unknown]
  - Off label use [Unknown]
  - Drug dose omission [Unknown]
  - Drug ineffective [Unknown]
